FAERS Safety Report 10051351 (Version 2)
Quarter: 2014Q2

REPORT INFORMATION
  Report Type: Spontaneous
  Country: US (occurrence: US)
  Receive Date: 20140401
  Receipt Date: 20140620
  Transmission Date: 20141212
  Serious: No
  Sender: FDA-Public Use
  Company Number: US-PFIZER INC-2014087587

PATIENT
  Age: 58 Year
  Sex: Female

DRUGS (4)
  1. XALKORI [Suspect]
     Indication: LUNG NEOPLASM MALIGNANT
     Dosage: 250 MG, BID
     Route: 048
     Dates: start: 20131102
  2. KLONOPIN [Concomitant]
     Dosage: UNK
  3. ZOLOFT [Concomitant]
     Dosage: UNK
  4. AMBIEN [Concomitant]
     Dosage: UNK

REACTIONS (1)
  - Face oedema [Not Recovered/Not Resolved]
